FAERS Safety Report 19110435 (Version 2)
Quarter: 2021Q2

REPORT INFORMATION
  Report Type: Spontaneous
  Country: US (occurrence: US)
  Receive Date: 20210409
  Receipt Date: 20210513
  Transmission Date: 20210717
  Serious: No
  Sender: FDA-Public Use
  Company Number: US-LUPIN PHARMACEUTICALS INC.-2021-04372

PATIENT
  Sex: Female

DRUGS (1)
  1. LOSARTAN POTASSIUM TABLET USP 100 MG [Suspect]
     Active Substance: LOSARTAN POTASSIUM
     Indication: PRODUCT USED FOR UNKNOWN INDICATION
     Dosage: UNK
     Route: 065
     Dates: start: 20210307, end: 20210315

REACTIONS (3)
  - Urine odour abnormal [Unknown]
  - Skin odour abnormal [Unknown]
  - Abnormal faeces [Unknown]

NARRATIVE: CASE EVENT DATE: 202103
